FAERS Safety Report 10373352 (Version 3)
Quarter: 2017Q2

REPORT INFORMATION
  Report Type: Spontaneous
  Country: US (occurrence: US)
  Receive Date: 20140808
  Receipt Date: 20170525
  Transmission Date: 20170829
  Serious: Yes (Other)
  Sender: FDA-Public Use
  Company Number: US-CELGENEUS-163-21880-14081070

PATIENT

DRUGS (11)
  1. DIPHENHYDRAMINE. [Concomitant]
     Active Substance: DIPHENHYDRAMINE
     Indication: PREMEDICATION
     Dosage: 50 MILLIGRAM
     Route: 041
  2. REVLIMID [Suspect]
     Active Substance: LENALIDOMIDE
     Indication: PLASMA CELL MYELOMA
     Dosage: 25 MILLIGRAM
     Route: 048
  3. RANITIDINE. [Concomitant]
     Active Substance: RANITIDINE
     Indication: PREMEDICATION
     Dosage: 50 MILLIGRAM
     Route: 041
  4. ACETAMINOPHEN. [Concomitant]
     Active Substance: ACETAMINOPHEN
     Indication: PREMEDICATION
     Dosage: 650 OR 1000 MG
     Route: 048
  5. SAR650984 [Suspect]
     Active Substance: ISATUXIMAB
     Indication: PLASMA CELL MYELOMA
     Dosage: 3, 5,MG/KG
     Route: 041
  6. SAR650984 [Suspect]
     Active Substance: ISATUXIMAB
     Dosage: WEEKLY FOR 4 DOSES, THEN EVERY 2 WEEKS
     Route: 041
  7. COUMADIN [Concomitant]
     Active Substance: WARFARIN SODIUM
     Indication: PREMEDICATION
     Route: 065
  8. ACETYLSALICYLIC ACID [Concomitant]
     Active Substance: ASPIRIN
     Indication: PREMEDICATION
     Dosage: 81 /325 MG
     Route: 065
  9. SAR650984 [Suspect]
     Active Substance: ISATUXIMAB
     Dosage: WEEKLY FOR 4 DOSES, THEN EVERY 2 WEEKS
     Route: 041
  10. METHYLPREDNISOLONE. [Concomitant]
     Active Substance: METHYLPREDNISOLONE
     Indication: PREMEDICATION
     Dosage: 100 MILLIGRAM
     Route: 065
  11. DEXAMETHASONE. [Suspect]
     Active Substance: DEXAMETHASONE
     Indication: PLASMA CELL MYELOMA
     Dosage: 40 MILLIGRAM
     Route: 065

REACTIONS (25)
  - Febrile neutropenia [Unknown]
  - Cough [Unknown]
  - Bronchospasm [Unknown]
  - Thrombocytopenia [Unknown]
  - Infection [Unknown]
  - Vomiting [Unknown]
  - Muscle spasms [Unknown]
  - Anaemia [Unknown]
  - Lung infection [Unknown]
  - Dyspnoea [Unknown]
  - Hypokalaemia [Unknown]
  - Anaphylactic reaction [Unknown]
  - Neutropenia [Unknown]
  - Leukopenia [Unknown]
  - Upper respiratory tract infection [Unknown]
  - Nasal congestion [Unknown]
  - Headache [Unknown]
  - Lymphopenia [Unknown]
  - Insomnia [Unknown]
  - Fatigue [Unknown]
  - Nausea [Unknown]
  - Dehydration [Unknown]
  - Pyrexia [Unknown]
  - Pneumonia [Unknown]
  - Diarrhoea [Unknown]
